FAERS Safety Report 9789250 (Version 1)
Quarter: 2013Q4

REPORT INFORMATION
  Report Type: Spontaneous
  Country: GB (occurrence: GB)
  Receive Date: 20131230
  Receipt Date: 20131230
  Transmission Date: 20140711
  Serious: Yes (Other)
  Sender: FDA-Public Use
  Company Number: GB-MYLANLABS-2013S1028359

PATIENT
  Age: 30 Month
  Sex: Female
  Weight: 17 kg

DRUGS (3)
  1. MONTELUKAST [Suspect]
     Indication: ASTHMA
     Route: 048
     Dates: start: 201308, end: 201310
  2. CLENIL MODULITE [Concomitant]
     Indication: ASTHMA
     Route: 055
     Dates: start: 201210
  3. VENTOLIN [Concomitant]
     Indication: ASTHMA
     Route: 055
     Dates: start: 201210

REACTIONS (6)
  - Abdominal pain [Recovered/Resolved]
  - Abnormal behaviour [Recovered/Resolved]
  - Aggression [Recovered/Resolved]
  - Hallucination [Recovered/Resolved]
  - Nightmare [Recovered/Resolved]
  - Flatulence [Recovered/Resolved]
